FAERS Safety Report 6314800-4 (Version None)
Quarter: 2009Q3

REPORT INFORMATION
  Report Type: 
  Country: None (occurrence: None)
  Receive Date: 20090819
  Receipt Date: 20090813
  Transmission Date: 20100115
  Serious: Yes (Hospitalization)
  Sender: FDA-Public Use
  Company Number: FR-ASTRAZENECA-2009SE08118

PATIENT
  Age: 75 Year
  Sex: Male

DRUGS (4)
  1. ZOLADEX [Suspect]
     Indication: PROSTATE CANCER
     Route: 058
     Dates: start: 20080401
  2. AMLOR [Concomitant]
     Indication: HYPERTENSION
  3. PHYSIOTENS [Concomitant]
     Indication: HYPERTENSION
  4. ANDROCUR [Concomitant]
     Indication: PROSTATE CANCER
     Dates: start: 20090401

REACTIONS (2)
  - DELIRIUM [None]
  - DEPRESSION [None]
